FAERS Safety Report 23363757 (Version 1)
Quarter: 2024Q1

REPORT INFORMATION
  Report Type: Report from Study
  Country: GB (occurrence: GB)
  Receive Date: 20240103
  Receipt Date: 20240103
  Transmission Date: 20240410
  Serious: Yes (Hospitalization, Other)
  Sender: FDA-Public Use
  Company Number: GB-ABBVIE-5566398

PATIENT
  Age: 68 Year
  Sex: Female

DRUGS (1)
  1. SKYRIZI [Suspect]
     Active Substance: RISANKIZUMAB-RZAA
     Indication: Product used for unknown indication
     Route: 058

REACTIONS (4)
  - Leg amputation [Unknown]
  - Unevaluable event [Unknown]
  - Incorrect product administration duration [Unknown]
  - Leg amputation [Unknown]

NARRATIVE: CASE EVENT DATE: 20230101
